FAERS Safety Report 8066502-4 (Version None)
Quarter: 2012Q1

REPORT INFORMATION
  Report Type: 
  Country: None (occurrence: None)
  Receive Date: 20120124
  Receipt Date: 20120116
  Transmission Date: 20120608
  Serious: Yes (Hospitalization)
  Sender: FDA-Public Use
  Company Number: FR-B.I. PHARMACEUTICALS,INC./RIDGEFIELD-2012-FF-00058FF

PATIENT
  Sex: Female
  Weight: 73 kg

DRUGS (5)
  1. PRADAXA [Suspect]
     Indication: PROPHYLAXIS
     Dosage: 150 MG
     Route: 048
     Dates: start: 20120110, end: 20120115
  2. ACETAMINOPHEN [Concomitant]
     Indication: PAIN
     Dosage: 3000 MG
     Route: 048
     Dates: start: 20120111
  3. ASPIRIN [Concomitant]
     Dosage: 75 MG
     Route: 048
     Dates: start: 20120113
  4. VOLTAREN [Concomitant]
     Indication: PAIN
     Dosage: 150 MG
     Route: 048
     Dates: start: 20120111
  5. FERROUS SULFATE TAB [Concomitant]
     Indication: ANAEMIA
     Route: 048
     Dates: start: 20120112

REACTIONS (1)
  - DEEP VEIN THROMBOSIS [None]
